FAERS Safety Report 4694947-9 (Version None)
Quarter: 2005Q2

REPORT INFORMATION
  Report Type: 
  Country: None (occurrence: None)
  Receive Date: 20050617
  Receipt Date: 20050610
  Transmission Date: 20051028
  Serious: Yes (Hospitalization, Other)
  Sender: FDA-Public Use
  Company Number: 200510575BVD

PATIENT
  Age: 69 Year
  Sex: Female
  Weight: 81 kg

DRUGS (4)
  1. AVALOX (MOXIFLOXACIN HYDROCHLORIDE) [Suspect]
     Indication: BRONCHITIS
     Dosage: 400 MG, QD , ORAL
     Route: 048
     Dates: start: 20050310, end: 20050314
  2. MUCOSOLVAN [Concomitant]
  3. AMINOPHYLLIN [Concomitant]
  4. ASPIRIN [Concomitant]

REACTIONS (15)
  - ALANINE AMINOTRANSFERASE INCREASED [None]
  - ASPARTATE AMINOTRANSFERASE INCREASED [None]
  - BLOOD ALBUMIN DECREASED [None]
  - BLOOD FIBRINOGEN INCREASED [None]
  - CHILLS [None]
  - EPILEPSY [None]
  - HAEMATOCRIT DECREASED [None]
  - HAEMOGLOBIN DECREASED [None]
  - MALAISE [None]
  - NAUSEA [None]
  - NEUTROPHIL COUNT INCREASED [None]
  - PALLOR [None]
  - RED BLOOD CELL SEDIMENTATION RATE INCREASED [None]
  - SYNCOPE [None]
  - WHITE BLOOD CELL COUNT DECREASED [None]
